FAERS Safety Report 21729521 (Version 1)
Quarter: 2022Q4

REPORT INFORMATION
  Report Type: Spontaneous
  Country: US (occurrence: US)
  Receive Date: 20221214
  Receipt Date: 20221214
  Transmission Date: 20230113
  Serious: Yes (Hospitalization)
  Sender: FDA-Public Use
  Company Number: US-ALLERGAN-2240899US

PATIENT
  Sex: Female
  Weight: 42.8 kg

DRUGS (12)
  1. DALVANCE [Suspect]
     Active Substance: DALBAVANCIN
     Indication: Localised infection
     Dosage: UNK, SINGLE
     Dates: start: 202209, end: 202209
  2. DALVANCE [Suspect]
     Active Substance: DALBAVANCIN
     Dosage: UNK UNK, SINGLE
     Dates: start: 202208, end: 202208
  3. REMODULIN [Suspect]
     Active Substance: TREPROSTINIL
     Indication: Pulmonary arterial hypertension
     Dosage: 0.05 ?G/KG, SINGLE
     Route: 042
  4. REMODULIN [Suspect]
     Active Substance: TREPROSTINIL
     Dosage: 0.049 ?G/KG, SINGLE
     Route: 042
  5. REMODULIN [Suspect]
     Active Substance: TREPROSTINIL
     Dosage: UNK, SINGLE
     Route: 042
  6. REMODULIN [Suspect]
     Active Substance: TREPROSTINIL
     Dosage: 0.048 ?G/KG, SINGLE
  7. REMODULIN [Suspect]
     Active Substance: TREPROSTINIL
     Dosage: 0.046 ?G/KG, SINGLE
     Route: 042
  8. REMODULIN [Suspect]
     Active Substance: TREPROSTINIL
     Dosage: 0.44 ?G/KG, SINGLE
     Route: 042
     Dates: start: 20210521, end: 20220521
  9. UNSPECIFIED INGREDIENT [Suspect]
     Active Substance: UNSPECIFIED INGREDIENT
     Indication: Osteomyelitis
     Dosage: UNK, SINGLE
     Route: 042
  10. VANCOMYCIN [Suspect]
     Active Substance: VANCOMYCIN
     Indication: Localised infection
     Route: 042
  11. SPIRONOLACTONE [Concomitant]
     Active Substance: SPIRONOLACTONE
  12. BUMEX [Concomitant]
     Active Substance: BUMETANIDE

REACTIONS (11)
  - Dyspnoea [Unknown]
  - Blood sodium decreased [Unknown]
  - Muscle spasms [Unknown]
  - Malaise [Unknown]
  - Pain [Unknown]
  - Flatulence [Unknown]
  - Sinus disorder [Unknown]
  - Condition aggravated [Unknown]
  - Diarrhoea [Recovering/Resolving]
  - Nausea [Recovering/Resolving]
  - Headache [Recovering/Resolving]
